FAERS Safety Report 12317686 (Version 2)
Quarter: 2016Q2

REPORT INFORMATION
  Report Type: Spontaneous
  Country: JP (occurrence: JP)
  Receive Date: 20160429
  Receipt Date: 20160513
  Transmission Date: 20160815
  Serious: Yes (Other)
  Sender: FDA-Public Use
  Company Number: JP-ABBVIE-16P-087-1616775-00

PATIENT
  Age: 59 Year
  Sex: Female
  Weight: 60 kg

DRUGS (17)
  1. ROCURONIUM BROMIDE. [Interacting]
     Active Substance: ROCURONIUM BROMIDE
     Indication: ANAESTHESIA
     Route: 065
  2. BROMAZEPAM [Interacting]
     Active Substance: BROMAZEPAM
     Indication: DEPRESSION
     Route: 065
  3. FENTANYL. [Suspect]
     Active Substance: FENTANYL
     Indication: PRODUCT USED FOR UNKNOWN INDICATION
     Route: 065
  4. POTASSIUM CARBONATE [Concomitant]
     Active Substance: POTASSIUM CARBONATE
     Indication: BIPOLAR I DISORDER
  5. LITHIUM CARBONATE. [Interacting]
     Active Substance: LITHIUM CARBONATE
     Indication: BIPOLAR DISORDER
     Route: 065
  6. CLOMIPRAMINE [Interacting]
     Active Substance: CLOMIPRAMINE
     Indication: DEPRESSION
     Route: 065
  7. OLANZAPINE. [Interacting]
     Active Substance: OLANZAPINE
     Indication: DEPRESSION
     Route: 065
  8. PROPOFOL. [Interacting]
     Active Substance: PROPOFOL
     Indication: ANAESTHESIA
     Route: 065
  9. BUPIVACAINE. [Interacting]
     Active Substance: BUPIVACAINE
     Indication: SPINAL ANAESTHESIA
     Route: 008
  10. ETHYL LOFLAZEPATE [Interacting]
     Active Substance: ETHYL LOFLAZEPATE
     Indication: PRODUCT USED FOR UNKNOWN INDICATION
     Route: 065
  11. SEVOFLURANE. [Interacting]
     Active Substance: SEVOFLURANE
     Indication: ANAESTHESIA
     Route: 065
  12. LEVOMEPROMAZINE [Interacting]
     Active Substance: LEVOMEPROMAZINE
     Indication: DEPRESSION
     Route: 065
  13. FLUNITRAZEPAM [Interacting]
     Active Substance: FLUNITRAZEPAM
     Indication: DEPRESSION
     Route: 065
  14. DROPERIDOL. [Suspect]
     Active Substance: DROPERIDOL
     Indication: PRODUCT USED FOR UNKNOWN INDICATION
     Route: 065
  15. SODIUM VALPROATE [Suspect]
     Active Substance: VALPROATE SODIUM
     Indication: DEPRESSION
     Route: 065
  16. REMIFENTANIL [Interacting]
     Active Substance: REMIFENTANIL
     Indication: ANAESTHESIA
     Route: 065
  17. DEXAMETHASONE. [Suspect]
     Active Substance: DEXAMETHASONE
     Indication: PRODUCT USED FOR UNKNOWN INDICATION
     Route: 065

REACTIONS (2)
  - Drug interaction [Recovered/Resolved]
  - Hypotension [Recovered/Resolved]
